FAERS Safety Report 7919242-3 (Version None)
Quarter: 2011Q4

REPORT INFORMATION
  Report Type: 
  Country: None (occurrence: None)
  Receive Date: 20111114
  Receipt Date: 20111107
  Transmission Date: 20120403
  Serious: Yes (Death, Hospitalization)
  Sender: FDA-Public Use
  Company Number: NES-AE-11-006

PATIENT
  Age: 64 Year
  Sex: Female
  Weight: 59 kg

DRUGS (32)
  1. DECADRON [Concomitant]
  2. PROCHLORPERAZINE [Concomitant]
  3. PROTONIX [Concomitant]
  4. NAPROSYN [Concomitant]
  5. CATAPRES [Concomitant]
  6. SERTRALINE HYDROCHLORIDE [Concomitant]
  7. OXYCODONE AND ACETAMINOPHEN [Concomitant]
  8. PHENYTOIN [Concomitant]
  9. INSULIN [Concomitant]
  10. GLUCERNA [Concomitant]
  11. CYANOCOBALAMIN [Concomitant]
  12. DEXTROSE [Concomitant]
  13. HYDROMORPHONE HCL [Concomitant]
  14. DURAGESIC-100 [Concomitant]
  15. FOLIC ACID [Concomitant]
  16. JEVITY [Concomitant]
  17. ALPRAZOLAM [Concomitant]
  18. ASPIRIN [Concomitant]
  19. HEPARIN [Concomitant]
  20. VALIUM [Concomitant]
  21. LEVAQUIN [Concomitant]
  22. ACTONEL [Concomitant]
  23. NORVASC [Concomitant]
  24. SEROQUEL [Concomitant]
  25. ACETAMINOPHEN [Concomitant]
  26. MORPHINE SULFATE INJ [Suspect]
     Indication: CANCER PAIN
     Dosage: 1-2 TABLETS- BID - ORAL
     Route: 048
     Dates: start: 20080710, end: 20080901
  27. NEXIUM [Concomitant]
  28. FEMARA [Concomitant]
  29. ACTOS [Concomitant]
  30. MILK OF MAGNESIA TAB [Concomitant]
  31. BISACODYL [Concomitant]
  32. MORPHINE SULFATE [Concomitant]

REACTIONS (29)
  - SOMNOLENCE [None]
  - GENERAL PHYSICAL HEALTH DETERIORATION [None]
  - HYPERCALCAEMIA OF MALIGNANCY [None]
  - PNEUMONIA [None]
  - LETHARGY [None]
  - DIARRHOEA [None]
  - URINARY TRACT INFECTION [None]
  - ASTHENIA [None]
  - LEUKOCYTOSIS [None]
  - CARDIO-RESPIRATORY ARREST [None]
  - BONE PAIN [None]
  - NAUSEA [None]
  - UNRESPONSIVE TO STIMULI [None]
  - CONFUSIONAL STATE [None]
  - DISORIENTATION [None]
  - ACUTE RESPIRATORY FAILURE [None]
  - APPETITE DISORDER [None]
  - FALL [None]
  - RENAL FAILURE ACUTE [None]
  - FATIGUE [None]
  - BEDRIDDEN [None]
  - HYPOPHAGIA [None]
  - DYSPHAGIA [None]
  - AGITATION [None]
  - MYALGIA [None]
  - VOMITING [None]
  - ALTERED STATE OF CONSCIOUSNESS [None]
  - RESPIRATORY FAILURE [None]
  - SEPSIS [None]
